FAERS Safety Report 9362178 (Version 2)
Quarter: 2013Q3

REPORT INFORMATION
  Report Type: Report from Study
  Country: US (occurrence: US)
  Receive Date: 20130622
  Receipt Date: 20130715
  Transmission Date: 20140515
  Serious: Yes (Other)
  Sender: FDA-Public Use
  Company Number: US-ROCHE-1240182

PATIENT
  Sex: Female
  Weight: 96.25 kg

DRUGS (2)
  1. CELLCEPT [Suspect]
     Indication: NEPHROTIC SYNDROME
     Route: 065
     Dates: start: 20130315
  2. GABAPENTIN [Concomitant]

REACTIONS (1)
  - Leg amputation [Unknown]
